FAERS Safety Report 25497198 (Version 1)
Quarter: 2025Q3

REPORT INFORMATION
  Report Type: Other
  Country: CA (occurrence: CA)
  Receive Date: 20250701
  Receipt Date: 20250701
  Transmission Date: 20251021
  Serious: Yes (Hospitalization, Other)
  Sender: APOTEX
  Company Number: CA-PGRTD-001129948

PATIENT
  Age: 61 Year
  Sex: Male

DRUGS (1)
  1. DEXAMETHASONE [Suspect]
     Active Substance: DEXAMETHASONE
     Indication: Brain oedema
     Dosage: UNK UNK, BID
     Route: 048

REACTIONS (7)
  - Tachyphrenia [Recovering/Resolving]
  - Aggression [Recovering/Resolving]
  - Delusion [Recovering/Resolving]
  - Anxiety [Recovering/Resolving]
  - Psychotic disorder [Recovering/Resolving]
  - Increased appetite [Recovering/Resolving]
  - Insomnia [Recovering/Resolving]
